FAERS Safety Report 20411552 (Version 1)
Quarter: 2022Q1

REPORT INFORMATION
  Report Type: Spontaneous
  Country: IN (occurrence: IN)
  Receive Date: 20220201
  Receipt Date: 20220201
  Transmission Date: 20220424
  Serious: Yes (Hospitalization)
  Sender: FDA-Public Use
  Company Number: IN-ABBVIE-22K-078-4252346-00

PATIENT
  Age: 18 Year
  Sex: Male

DRUGS (12)
  1. VALPROATE [Suspect]
     Active Substance: VALPROIC ACID
     Indication: Seizure
     Route: 065
  2. SEVOFLURANE [Suspect]
     Active Substance: SEVOFLURANE
     Indication: Anaesthesia
     Dosage: UNK, 0.8-1 MINIMUM, ALVEOLAR CONCENTRATION
     Route: 065
  3. SEVOFLURANE [Suspect]
     Active Substance: SEVOFLURANE
     Dosage: TAPERED
     Route: 065
  4. CLONAZEPAM [Suspect]
     Active Substance: CLONAZEPAM
     Indication: Seizure
     Route: 065
  5. OXCARBAZEPINE [Suspect]
     Active Substance: OXCARBAZEPINE
     Indication: Seizure
     Route: 065
  6. LEVETIRACETAM [Suspect]
     Active Substance: LEVETIRACETAM
     Indication: Seizure
     Route: 065
  7. ZONISAMIDE [Suspect]
     Active Substance: ZONISAMIDE
     Indication: Seizure
     Dosage: 100 MG IN MORNING AND 200 MG AT BED TIME
     Route: 065
  8. FENTANYL [Suspect]
     Active Substance: FENTANYL
     Indication: Anaesthesia
     Route: 065
  9. FENTANYL [Suspect]
     Active Substance: FENTANYL
     Dosage: INFUSION
     Route: 065
  10. PROPOFOL [Suspect]
     Active Substance: PROPOFOL
     Indication: Anaesthesia
     Route: 065
  11. ROCURONIUM [Suspect]
     Active Substance: ROCURONIUM BROMIDE
     Indication: Endotracheal intubation
     Route: 065
  12. ROCURONIUM [Suspect]
     Active Substance: ROCURONIUM BROMIDE
     Dosage: INFUSION
     Route: 065

REACTIONS (1)
  - Sedation [Recovering/Resolving]
